FAERS Safety Report 25225444 (Version 1)
Quarter: 2025Q2

REPORT INFORMATION
  Report Type: Spontaneous
  Country: US (occurrence: None)
  Receive Date: 20250422
  Receipt Date: 20250422
  Transmission Date: 20250717
  Serious: Yes (Hospitalization)
  Sender: FDA-CTU
  Company Number: None

PATIENT
  Age: 51 Year
  Sex: Female
  Weight: 55.5 kg

DRUGS (1)
  1. CISPLATIN [Suspect]
     Active Substance: CISPLATIN
     Dates: end: 20250310

REACTIONS (4)
  - Tachycardia [None]
  - Lung opacity [None]
  - Pneumonia aspiration [None]
  - Secretion discharge [None]

NARRATIVE: CASE EVENT DATE: 20250413
